FAERS Safety Report 8356709-0 (Version None)
Quarter: 2012Q2

REPORT INFORMATION
  Report Type: 
  Country: None (occurrence: None)
  Receive Date: 20120514
  Receipt Date: 20120509
  Transmission Date: 20120825
  Serious: Yes (Hospitalization)
  Sender: FDA-Public Use
  Company Number: US-PFIZER INC-2012029199

PATIENT
  Sex: Female
  Weight: 58 kg

DRUGS (2)
  1. PRISTIQ [Suspect]
     Indication: DEPRESSION
     Dosage: 50 MG, 1X/DAY
     Route: 048
     Dates: start: 20111201, end: 20120201
  2. LAMICTAL [Concomitant]
     Dosage: 100 MG, 2X/DAY
     Route: 048

REACTIONS (7)
  - ABDOMINAL PAIN UPPER [None]
  - NAUSEA [None]
  - VOMITING [None]
  - DIARRHOEA [None]
  - DIZZINESS [None]
  - MALAISE [None]
  - WITHDRAWAL SYNDROME [None]
